FAERS Safety Report 23382726 (Version 1)
Quarter: 2024Q1

REPORT INFORMATION
  Report Type: Spontaneous
  Country: US (occurrence: US)
  Receive Date: 20240109
  Receipt Date: 20240109
  Transmission Date: 20240409
  Serious: Yes (Death, Hospitalization)
  Sender: FDA-Public Use
  Company Number: US-BAYER-2024A002315

PATIENT
  Age: 47 Year
  Sex: Male

DRUGS (3)
  1. ASPIRIN [Suspect]
     Active Substance: ASPIRIN
     Route: 048
  2. AMPHETAMINE [Suspect]
     Active Substance: AMPHETAMINE
  3. FENTANYL [Suspect]
     Active Substance: FENTANYL\FENTANYL CITRATE

REACTIONS (2)
  - Product use issue [Fatal]
  - Toxicity to various agents [Fatal]
